FAERS Safety Report 8222576-9 (Version None)
Quarter: 2012Q1

REPORT INFORMATION
  Report Type: 
  Country: None (occurrence: None)
  Receive Date: 20120320
  Receipt Date: 20120313
  Transmission Date: 20120608
  Serious: Yes (Hospitalization)
  Sender: FDA-Public Use
  Company Number: BR-US-EMD SERONO, INC.-7119479

PATIENT
  Sex: Female

DRUGS (1)
  1. REBIF [Suspect]
     Indication: PRODUCT USED FOR UNKNOWN INDICATION
     Dates: start: 20090801, end: 20110101

REACTIONS (3)
  - PULMONARY EMBOLISM [None]
  - MATERNAL EXPOSURE DURING PREGNANCY [None]
  - NORMAL NEWBORN [None]
